FAERS Safety Report 6398942-3 (Version None)
Quarter: 2009Q4

REPORT INFORMATION
  Report Type: 
  Country: None (occurrence: None)
  Receive Date: 20091013
  Receipt Date: 20090930
  Transmission Date: 20100525
  Serious: Yes (Other)
  Sender: FDA-Public Use
  Company Number: US-ELI_LILLY_AND_COMPANY-US200909007152

PATIENT
  Sex: Female

DRUGS (3)
  1. FORTEO [Suspect]
     Dosage: UNK, UNK
     Dates: start: 20090921, end: 20090901
  2. DILANTIN [Concomitant]
     Indication: EPILEPSY
  3. MYSOLINE [Concomitant]

REACTIONS (2)
  - AURA [None]
  - CONVULSION [None]
